FAERS Safety Report 8256604-1 (Version None)
Quarter: 2012Q2

REPORT INFORMATION
  Report Type: 
  Country: None (occurrence: None)
  Receive Date: 20120403
  Receipt Date: 20120327
  Transmission Date: 20120825
  Serious: Yes (Other)
  Sender: FDA-Public Use
  Company Number: US-CELGENEUS-163-21880-12033240

PATIENT
  Sex: Male
  Weight: 56.75 kg

DRUGS (1)
  1. REVLIMID [Suspect]
     Indication: MULTIPLE MYELOMA
     Dosage: 25 MILLIGRAM
     Route: 048
     Dates: start: 20111216, end: 20120307

REACTIONS (5)
  - DRUG INEFFECTIVE [None]
  - HALLUCINATION [None]
  - DECREASED APPETITE [None]
  - ASTHENIA [None]
  - APHASIA [None]
